FAERS Safety Report 10239872 (Version 1)
Quarter: 2014Q2

REPORT INFORMATION
  Report Type: Spontaneous
  Country: US (occurrence: US)
  Receive Date: 20140616
  Receipt Date: 20140616
  Transmission Date: 20141212
  Serious: No
  Sender: FDA-Public Use
  Company Number: US-009507513-1406USA006423

PATIENT
  Sex: Female

DRUGS (1)
  1. IMPLANON [Suspect]
     Indication: PRODUCT USED FOR UNKNOWN INDICATION
     Dosage: STANDARD, UNK
     Route: 059
     Dates: start: 2011

REACTIONS (3)
  - Device dislocation [Unknown]
  - Device difficult to use [Unknown]
  - No adverse event [Unknown]
